FAERS Safety Report 4405626-7 (Version None)
Quarter: 2004Q3

REPORT INFORMATION
  Report Type: 
  Country: None (occurrence: None)
  Receive Date: 20040723
  Receipt Date: 20031022
  Transmission Date: 20050211
  Serious: No
  Sender: FDA-Public Use
  Company Number: US-GLAXOSMITHKLINE-A0431166A

PATIENT
  Age: 64 Year
  Sex: Male

DRUGS (7)
  1. AVANDIA [Suspect]
     Route: 048
     Dates: start: 20030901
  2. LASIX [Suspect]
  3. MONOPRIL [Concomitant]
  4. METFORMIN HCL [Concomitant]
  5. INSULIN [Concomitant]
  6. LIPITOR [Concomitant]
  7. RANITIDINE [Concomitant]

REACTIONS (2)
  - FLUID RETENTION [None]
  - RASH PRURITIC [None]
